FAERS Safety Report 6535655-9 (Version None)
Quarter: 2009Q4

REPORT INFORMATION
  Report Type: 
  Country: None (occurrence: None)
  Receive Date: 20091228
  Receipt Date: 20090126
  Transmission Date: 20100525
  Serious: Yes (Hospitalization)
  Sender: FDA-Public Use
  Company Number: US-002407

PATIENT
  Age: 39 Year
  Sex: Female

DRUGS (3)
  1. MULTIHANCE [Suspect]
     Indication: HEADACHE
     Dosage: 10 ML QD, INTRAVENOUS
     Route: 042
     Dates: start: 20090123, end: 20090123
  2. MULTIHANCE [Suspect]
     Indication: NUCLEAR MAGNETIC RESONANCE IMAGING BRAIN
     Dosage: 10 ML QD, INTRAVENOUS
     Route: 042
     Dates: start: 20090123, end: 20090123
  3. MULTIHANCE [Suspect]
     Indication: THROMBOSIS
     Dosage: 10 ML QD, INTRAVENOUS
     Route: 042
     Dates: start: 20090123, end: 20090123

REACTIONS (1)
  - ANAPHYLACTOID REACTION [None]
